FAERS Safety Report 5873234-7 (Version None)
Quarter: 2008Q3

REPORT INFORMATION
  Report Type: 
  Country: None (occurrence: None)
  Receive Date: 20080908
  Receipt Date: 20080903
  Transmission Date: 20090109
  Serious: Yes (Other)
  Sender: FDA-Public Use
  Company Number: ES-BAYER-200825492GPV

PATIENT
  Age: 75 Year
  Sex: Male

DRUGS (1)
  1. ACTIRA [Suspect]
     Indication: BRONCHITIS
     Dosage: TOTAL DAILY DOSE: 400 MG  UNIT DOSE: 400 MG
     Route: 048
     Dates: start: 20080613, end: 20080616

REACTIONS (4)
  - ANXIETY [None]
  - BLINDNESS [None]
  - HALLUCINATION [None]
  - VOMITING [None]
